FAERS Safety Report 17457616 (Version 1)
Quarter: 2020Q1

REPORT INFORMATION
  Report Type: Spontaneous
  Country: GB (occurrence: GB)
  Receive Date: 20200225
  Receipt Date: 20200225
  Transmission Date: 20200409
  Serious: Yes (Death, Other)
  Sender: FDA-Public Use
  Company Number: GB-GILEAD-2020-0452269

PATIENT
  Age: 38 Year
  Sex: Male
  Weight: 60 kg

DRUGS (1)
  1. GENVOYA [Suspect]
     Active Substance: COBICISTAT\ELVITEGRAVIR\EMTRICITABINE\TENOFOVIR ALAFENAMIDE FUMARATE
     Indication: ACUTE HIV INFECTION
     Dosage: PATIENT TOOK A DELIBERATE OVERDOSE OF 30 TABLETS
     Route: 048
     Dates: start: 20190605, end: 20190606

REACTIONS (4)
  - Arrhythmia [Fatal]
  - Overdose [Fatal]
  - Cardiac arrest [Fatal]
  - Toxicity to various agents [Fatal]

NARRATIVE: CASE EVENT DATE: 20190605
